FAERS Safety Report 8515992-9 (Version None)
Quarter: 2012Q3

REPORT INFORMATION
  Report Type: 
  Country: None (occurrence: None)
  Receive Date: 20120717
  Receipt Date: 20110709
  Transmission Date: 20120928
  Serious: Yes (Other)
  Sender: FDA-Public Use
  Company Number: CO-PFIZER INC-2012171013

PATIENT
  Age: 76 Year
  Sex: Male

DRUGS (6)
  1. AMIODARONE [Concomitant]
     Dosage: 200 MG, 1X/DAY
     Route: 048
  2. LIPITOR [Suspect]
     Dosage: 10 MG, 1X/DAY
     Route: 048
  3. LOSARTAN [Concomitant]
     Dosage: 50 MG, 2X/DAY
     Route: 048
  4. FUROSEMIDE [Concomitant]
     Dosage: 40 MG, 1X/DAY
     Route: 048
  5. METFORMIN [Concomitant]
     Dosage: 850 MG, 2X/DAY
     Route: 048
  6. SPIRONOLACTONE [Concomitant]
     Dosage: 25 MG, 1X/DAY
     Route: 048

REACTIONS (1)
  - HAEMATURIA [None]
